FAERS Safety Report 25545449 (Version 1)
Quarter: 2025Q3

REPORT INFORMATION
  Report Type: Spontaneous
  Country: US (occurrence: US)
  Receive Date: 20250711
  Receipt Date: 20250711
  Transmission Date: 20251021
  Serious: Yes (Death)
  Sender: FRESENIUS MEDICAL CARE
  Company Number: US-FMCRTG-FMC-2507-001059

PATIENT
  Age: 72 Year
  Sex: Male
  Weight: 68.5 kg

DRUGS (17)
  1. DELFLEX WITH DEXTROSE 1.5% LOW MAGNESIUM LOW CALCIUM [Suspect]
     Active Substance: CALCIUM CHLORIDE\DEXTROSE\MAGNESIUM CHLORIDE\SODIUM CHLORIDE\SODIUM LACTATE
     Indication: End stage renal disease
     Route: 033
  2. DELFLEX WITH DEXTROSE 2.5% LOW MAGNESIUM LOW CALCIUM [Suspect]
     Active Substance: CALCIUM CHLORIDE\DEXTROSE\MAGNESIUM CHLORIDE\SODIUM CHLORIDE\SODIUM LACTATE
     Indication: End stage renal disease
     Route: 033
  3. DELFLEX WITH DEXTROSE 4.25% LOW MAGNESIUM LOW CALCIUM [Suspect]
     Active Substance: CALCIUM CHLORIDE\DEXTROSE\MAGNESIUM CHLORIDE\SODIUM CHLORIDE\SODIUM LACTATE
     Indication: End stage renal disease
     Route: 033
  4. CALCITRIOL [Concomitant]
     Active Substance: CALCITRIOL
  5. CARVEDILOL [Concomitant]
     Active Substance: CARVEDILOL
  6. CETIRIZINE [Concomitant]
     Active Substance: CETIRIZINE HYDROCHLORIDE
  7. DESONIDE [Concomitant]
     Active Substance: DESONIDE
  8. FLUTICASONE PROPIONATE [Concomitant]
     Active Substance: FLUTICASONE PROPIONATE
  9. GENTAMICIN [Concomitant]
     Active Substance: GENTAMICIN
  10. LORATADINE [Concomitant]
     Active Substance: LORATADINE
  11. POTASSIUM CHLORIDE [Concomitant]
     Active Substance: POTASSIUM CHLORIDE
  12. PROTONIX [Concomitant]
     Active Substance: PANTOPRAZOLE SODIUM
  13. REGLAN [Concomitant]
     Active Substance: METOCLOPRAMIDE HYDROCHLORIDE
  14. RENAPLEX D [Concomitant]
  15. SENSIPAR [Concomitant]
     Active Substance: CINACALCET HYDROCHLORIDE
  16. VALSARTAN [Concomitant]
     Active Substance: VALSARTAN
  17. VELPHORO [Concomitant]
     Active Substance: SUCROFERRIC OXYHYDROXIDE

REACTIONS (1)
  - Cardiac arrest [Fatal]

NARRATIVE: CASE EVENT DATE: 20250628
